FAERS Safety Report 14746189 (Version 1)
Quarter: 2018Q2

REPORT INFORMATION
  Report Type: Spontaneous
  Country: US (occurrence: US)
  Receive Date: 20180411
  Receipt Date: 20180411
  Transmission Date: 20180711
  Serious: Yes (Hospitalization, Other)
  Sender: FDA-Public Use
  Company Number: US-PFIZER INC-2018142238

PATIENT
  Age: 18 Year
  Sex: Female

DRUGS (2)
  1. IBUPROFEN. [Concomitant]
     Active Substance: IBUPROFEN
     Dosage: UNK
  2. DIPHENHYDRAMINE HCL [Suspect]
     Active Substance: DIPHENHYDRAMINE HYDROCHLORIDE
     Dosage: UNK

REACTIONS (8)
  - Acute respiratory distress syndrome [Unknown]
  - Pulseless electrical activity [Unknown]
  - Toxicity to various agents [Unknown]
  - Overdose [Unknown]
  - Cardiac arrest [Unknown]
  - Circulatory collapse [Unknown]
  - Cardiogenic shock [Unknown]
  - Tachycardia [Unknown]
